FAERS Safety Report 7146042-7 (Version None)
Quarter: 2010Q4

REPORT INFORMATION
  Report Type: 
  Country: None (occurrence: None)
  Receive Date: 20101123
  Receipt Date: 20101111
  Transmission Date: 20110411
  Serious: Yes (Hospitalization)
  Sender: FDA-Public Use
  Company Number: DSA_44336_2010

PATIENT
  Age: 15 Year
  Sex: Male

DRUGS (3)
  1. BUPROPION HCL [Suspect]
     Indication: ANXIETY
     Dosage: (3000 MG 1X, NOT THE PRESCRIBED DOSE ORAL) ; (300 MG QD ORAL)
     Route: 048
  2. BUPROPION HCL [Suspect]
     Indication: ATTENTION DEFICIT/HYPERACTIVITY DISORDER
     Dosage: (3000 MG 1X, NOT THE PRESCRIBED DOSE ORAL) ; (300 MG QD ORAL)
     Route: 048
  3. BUPROPION HCL [Suspect]
     Indication: DEPRESSION
     Dosage: (3000 MG 1X, NOT THE PRESCRIBED DOSE ORAL) ; (300 MG QD ORAL)
     Route: 048

REACTIONS (4)
  - HALLUCINATION [None]
  - INCOHERENT [None]
  - SEROTONIN SYNDROME [None]
  - TONIC CLONIC MOVEMENTS [None]
